FAERS Safety Report 13363389 (Version 1)
Quarter: 2017Q1

REPORT INFORMATION
  Report Type: Spontaneous
  Country: TH (occurrence: TH)
  Receive Date: 20170323
  Receipt Date: 20170323
  Transmission Date: 20170429
  Serious: Yes (Other)
  Sender: FDA-Public Use
  Company Number: ALCN2017TH002153

PATIENT
  Age: 51 Year
  Sex: Male

DRUGS (11)
  1. VIGAMOX [Suspect]
     Active Substance: MOXIFLOXACIN HYDROCHLORIDE
     Dosage: UNK, Q2H (UNTIL 22.00)
     Route: 047
  2. CLARITHROMYCIN. [Concomitant]
     Active Substance: CLARITHROMYCIN
     Indication: PRODUCT USED FOR UNKNOWN INDICATION
     Dosage: UNK (1X20 PC X 2 WEEKS)
     Route: 065
  3. VIGAMOX [Suspect]
     Active Substance: MOXIFLOXACIN HYDROCHLORIDE
     Indication: PRODUCT USED FOR UNKNOWN INDICATION
     Dosage: UNK UNK, QH
     Route: 047
  4. ATROPINE SULFATE. [Suspect]
     Active Substance: ATROPINE SULFATE
     Indication: PRODUCT USED FOR UNKNOWN INDICATION
     Dosage: UNK UNK, QID
     Route: 047
  5. AMIKACIN [Concomitant]
     Active Substance: AMIKACIN
     Dosage: UNK, QID
     Route: 047
  6. AMIKACIN [Concomitant]
     Active Substance: AMIKACIN
     Dosage: UNK, Q2H (UNTIL 22.00)
     Route: 047
  7. IMIPENEM [Concomitant]
     Active Substance: IMIPENEM
     Indication: PRODUCT USED FOR UNKNOWN INDICATION
     Dosage: 500 MG, Q6H
     Route: 042
  8. PREDNISOLONE. [Concomitant]
     Active Substance: PREDNISOLONE
     Indication: PRODUCT USED FOR UNKNOWN INDICATION
     Dosage: UNK UNK, QID
     Route: 047
  9. AMIKACIN [Concomitant]
     Active Substance: AMIKACIN
     Indication: PRODUCT USED FOR UNKNOWN INDICATION
     Dosage: UNK UNK, QH
     Route: 047
  10. AMIKACIN [Concomitant]
     Active Substance: AMIKACIN
     Dosage: 750 MG, QD ((15MG/KG/D))
     Route: 042
  11. LEVOFLOXACIN. [Concomitant]
     Active Substance: LEVOFLOXACIN
     Indication: PRODUCT USED FOR UNKNOWN INDICATION
     Dosage: UNK (1 1/20 X 2 WEEKS)
     Route: 065

REACTIONS (2)
  - Mycobacterium abscessus infection [Unknown]
  - Keratitis bacterial [Unknown]
